FAERS Safety Report 15731049 (Version 6)
Quarter: 2019Q4

REPORT INFORMATION
  Report Type: Report from Study
  Country: US (occurrence: US)
  Receive Date: 20181217
  Receipt Date: 20191004
  Transmission Date: 20200122
  Serious: Yes (Life-Threatening, Hospitalization)
  Sender: FDA-Public Use
  Company Number: US-PFIZER INC-2018513034

PATIENT
  Age: 60 Year
  Sex: Female
  Weight: 124.72 kg

DRUGS (40)
  1. CALCIUM CHLORIDE. [Concomitant]
     Active Substance: CALCIUM CHLORIDE
     Indication: HYPOCALCAEMIA
     Dosage: UNK
     Dates: start: 20181206, end: 20181206
  2. SODIUM CHLORIDE. [Concomitant]
     Active Substance: SODIUM CHLORIDE
     Indication: FLUID REPLACEMENT
     Dosage: INFUSION
     Dates: start: 20181206, end: 20181210
  3. DIPRIVAN [Concomitant]
     Active Substance: PROPOFOL
     Indication: ANAESTHESIA
     Dosage: UNK
     Dates: start: 20181206, end: 20181206
  4. KETAMINE [Concomitant]
     Active Substance: KETAMINE
     Indication: ANAESTHESIA
     Dosage: UNK
     Dates: start: 20181206, end: 20181206
  5. LEVOTHYROXINE. [Concomitant]
     Active Substance: LEVOTHYROXINE
     Indication: HYPOTHYROIDISM
     Dosage: UNK
     Dates: start: 20181207
  6. BACITRACIN. [Concomitant]
     Active Substance: BACITRACIN
     Indication: PROPHYLAXIS
     Dosage: UNK
     Dates: start: 20181206, end: 20181206
  7. LOPRESSOR [Concomitant]
     Active Substance: METOPROLOL TARTRATE
     Indication: HYPERTENSION
     Dosage: UNK
     Dates: start: 20181207
  8. PLACEBO [Suspect]
     Active Substance: UNSPECIFIED INGREDIENT
     Indication: IMMUNISATION
     Dosage: SINGLE DOSE
     Route: 030
     Dates: start: 20181127, end: 20181127
  9. BUPIVACAINE W/EPINEPHRINE [Concomitant]
     Active Substance: BUPIVACAINE\EPINEPHRINE
     Indication: SURGERY
     Dosage: UNK
     Dates: start: 20181206, end: 20181206
  10. PREGABALIN. [Concomitant]
     Active Substance: PREGABALIN
     Indication: NEURALGIA
     Dosage: UNK
     Dates: start: 20181207
  11. FUROSEMIDE. [Concomitant]
     Active Substance: FUROSEMIDE
     Indication: OEDEMA
     Dosage: UNK
     Dates: start: 20181208, end: 20181208
  12. VANCOMYCIN [Concomitant]
     Active Substance: VANCOMYCIN
     Indication: PROPHYLAXIS
     Dosage: UNK
     Dates: start: 20181206, end: 20181206
  13. METHOCARBAMOL. [Concomitant]
     Active Substance: METHOCARBAMOL
     Indication: MUSCLE SPASMS
     Dosage: UNK
     Dates: start: 20181206
  14. FENTANYL. [Concomitant]
     Active Substance: FENTANYL
     Indication: ANAESTHESIA
     Dosage: UNK
     Dates: start: 20181206, end: 20181206
  15. DEXAMETHASONE. [Concomitant]
     Active Substance: DEXAMETHASONE
     Indication: INFLAMMATION
     Dosage: UNK
     Dates: start: 20181206, end: 20181206
  16. ROCURONIUM [Concomitant]
     Active Substance: ROCURONIUM BROMIDE
     Indication: ANAESTHESIA
     Dosage: UNK
     Dates: start: 20181206, end: 20181206
  17. NEOSTIGMINE. [Concomitant]
     Active Substance: NEOSTIGMINE METHYLSULFATE
     Indication: ANAESTHESIA REVERSAL
     Dosage: UNK
     Dates: start: 20181206, end: 20181206
  18. VERSED [Concomitant]
     Active Substance: MIDAZOLAM HYDROCHLORIDE
     Indication: SEDATION
     Dosage: UNK
     Dates: start: 20181206, end: 20181206
  19. HEPARIN [Concomitant]
     Active Substance: HEPARIN SODIUM
     Indication: PROPHYLAXIS
     Dosage: UNK
     Dates: start: 20181207
  20. LOSARTAN AND HYDROCHLOROTHIAZIDE [Concomitant]
     Active Substance: HYDROCHLOROTHIAZIDE\LOSARTAN POTASSIUM
     Indication: OEDEMA
     Dosage: UNK
     Dates: start: 20181207
  21. FAMOTIDINE. [Concomitant]
     Active Substance: FAMOTIDINE
     Indication: ULCER
     Dosage: UNK
     Dates: start: 20181206, end: 20181210
  22. SENNA DOCUSATE [Concomitant]
     Indication: CONSTIPATION
     Dosage: UNK
     Dates: start: 20181206, end: 20181211
  23. CEFAZOLIN [Concomitant]
     Active Substance: CEFAZOLIN
     Indication: PROPHYLAXIS
     Dosage: UNK
     Dates: start: 20181206, end: 20181206
  24. PHENYLEPHRINE [Concomitant]
     Active Substance: PHENYLEPHRINE HYDROCHLORIDE
     Indication: HYPOTENSION
     Dosage: UNK
     Dates: start: 20181206, end: 20181206
  25. LIDOCAINE. [Concomitant]
     Active Substance: LIDOCAINE
     Indication: SURGERY
     Dosage: UNK
     Dates: start: 20181206, end: 20181206
  26. LOVASTATIN. [Concomitant]
     Active Substance: LOVASTATIN
     Indication: HYPERCHOLESTEROLAEMIA
     Dosage: UNK
     Dates: start: 20181207
  27. PHENERGAN [Concomitant]
     Active Substance: PROMETHAZINE HYDROCHLORIDE
     Indication: NAUSEA
     Dosage: UNK
     Dates: start: 20181206, end: 20181206
  28. MAGNESIUM OXIDE. [Concomitant]
     Active Substance: MAGNESIUM OXIDE
     Indication: HYPOMAGNESAEMIA
     Dosage: UNK
     Dates: start: 20181207
  29. HYDROMORPHONE HYDROCHLORIDE. [Suspect]
     Active Substance: HYDROMORPHONE HYDROCHLORIDE
     Indication: PAIN
     Dosage: 0.2 MG/ML, AS NEEDED (PLA IN 0.9% NACL)
     Route: 042
     Dates: start: 20181206, end: 20181207
  30. FISH OIL/OMEGA-3 FATTY ACIDS [Concomitant]
     Indication: HYPERCHOLESTEROLAEMIA
     Dosage: UNK
     Dates: start: 20181207
  31. ONDANSETRON HCL [Concomitant]
     Active Substance: ONDANSETRON HYDROCHLORIDE
     Indication: NAUSEA
     Dosage: UNK
     Dates: start: 20181206, end: 20181206
  32. EPHEDRINE SULFATE. [Concomitant]
     Active Substance: EPHEDRINE SULFATE
     Indication: HYPOTENSION
     Dosage: UNK
     Dates: start: 20181206, end: 20181206
  33. ALBUMIN HUMAN [Concomitant]
     Active Substance: ALBUMIN HUMAN
     Indication: HYPOALBUMINAEMIA
     Dosage: UNK
     Dates: start: 20181206, end: 20181206
  34. MUPIROCIN. [Concomitant]
     Active Substance: MUPIROCIN
     Indication: PROPHYLAXIS
     Dosage: UNK
     Dates: start: 20181206
  35. ACETAMINOPHEN. [Concomitant]
     Active Substance: ACETAMINOPHEN
     Indication: ANALGESIC THERAPY
     Dosage: UNK
     Dates: start: 20181206, end: 20181206
  36. VENLAFAXINE [Concomitant]
     Active Substance: VENLAFAXINE HYDROCHLORIDE
     Indication: DEPRESSION
     Dosage: UNK
     Dates: start: 20181206
  37. THROMBIN BOVINE [Concomitant]
     Active Substance: THROMBIN
     Indication: COAGULOPATHY
     Dosage: UNK
     Dates: start: 20181206, end: 20181206
  38. SUCCINYLCHOLINE [SUXAMETHONIUM] [Concomitant]
     Active Substance: SUCCINYLCHOLINE
     Indication: ENDOTRACHEAL INTUBATION
     Dosage: UNK
     Dates: start: 20181206, end: 20181206
  39. ULTIVA [Concomitant]
     Active Substance: REMIFENTANIL HYDROCHLORIDE
     Indication: ANALGESIC THERAPY
     Dosage: UNK
     Dates: start: 20181206, end: 20181206
  40. GLYCOPYRROLATE [GLYCOPYRRONIUM] [Concomitant]
     Indication: ANAESTHESIA REVERSAL
     Dosage: UNK
     Dates: start: 20181206, end: 20181206

REACTIONS (2)
  - Respiratory failure [Recovered/Resolved]
  - Metabolic encephalopathy [Recovered/Resolved]

NARRATIVE: CASE EVENT DATE: 20181208
